FAERS Safety Report 5066935-4 (Version None)
Quarter: 2006Q3

REPORT INFORMATION
  Report Type: 
  Country: None (occurrence: None)
  Receive Date: 20060726
  Receipt Date: 20060718
  Transmission Date: 20061208
  Serious: Yes (Hospitalization)
  Sender: FDA-Public Use
  Company Number: 2006076882

PATIENT
  Age: 72 Year
  Sex: Female
  Weight: 51 kg

DRUGS (2)
  1. LIPITOR [Suspect]
     Indication: HYPERLIPIDAEMIA
     Dosage: 10 MG (1 IN 1 D), ORAL
     Route: 048
     Dates: start: 20031119, end: 20060428
  2. SHAKUYAKU-KANZO-TO (LIQUORICE,  PEONY) [Suspect]
     Indication: CALCULUS URETERIC
     Dosage: 7.5 GRAM (2.5 GRAM, 3 IN 1 D), ORAL
     Route: 048
     Dates: start: 20060405, end: 20060421

REACTIONS (5)
  - BLOOD POTASSIUM DECREASED [None]
  - DRUG INTERACTION [None]
  - GAIT DISTURBANCE [None]
  - PARAESTHESIA [None]
  - RHABDOMYOLYSIS [None]
